FAERS Safety Report 14798566 (Version 1)
Quarter: 2018Q2

REPORT INFORMATION
  Report Type: Spontaneous
  Country: US (occurrence: US)
  Receive Date: 20180424
  Receipt Date: 20180424
  Transmission Date: 20180711
  Serious: Yes (Other)
  Sender: FDA-Public Use
  Company Number: US-AUROBINDO-AUR-APL-2018-021225

PATIENT
  Age: 75 Year
  Sex: Female

DRUGS (1)
  1. VANCOMYCIN INJECTION [Suspect]
     Active Substance: VANCOMYCIN
     Indication: PRODUCT USED FOR UNKNOWN INDICATION

REACTIONS (10)
  - Retinal haemorrhage [Recovered/Resolved]
  - Retinal vasculitis [Recovered/Resolved]
  - Eye pain [Recovered/Resolved]
  - Visual impairment [Recovered/Resolved]
  - Peripheral ischaemia [Recovered/Resolved]
  - Macular ischaemia [Recovered/Resolved]
  - Hypotony of eye [Recovered/Resolved]
  - Ocular discomfort [Unknown]
  - Vitreous disorder [Recovered/Resolved]
  - Corneal oedema [Recovered/Resolved]
